FAERS Safety Report 5876510-7 (Version None)
Quarter: 2008Q3

REPORT INFORMATION
  Report Type: 
  Country: None (occurrence: None)
  Receive Date: 20080910
  Receipt Date: 20080901
  Transmission Date: 20090109
  Serious: Yes (Hospitalization)
  Sender: FDA-Public Use
  Company Number: B0535109A

PATIENT
  Age: 55 Year
  Sex: Male

DRUGS (10)
  1. ZOVIRAX [Suspect]
     Route: 042
     Dates: start: 20080416, end: 20080522
  2. AZACTAM [Concomitant]
     Dates: start: 20080416, end: 20080424
  3. NEBCIN [Concomitant]
     Dates: start: 20080416, end: 20080424
  4. TARGOCID [Concomitant]
     Dates: start: 20080416, end: 20080424
  5. TIENAM [Concomitant]
     Dates: start: 20080424
  6. RIFAMPICIN [Concomitant]
     Dates: start: 20080424
  7. VANCOMYCIN HCL [Concomitant]
     Dates: start: 20080424
  8. ARACYTINE [Concomitant]
     Indication: CHEMOTHERAPY
     Dates: start: 20080414
  9. DAUNORUBICIN HCL [Concomitant]
     Indication: CHEMOTHERAPY
     Dates: start: 20080414
  10. CYCLOSPORINE [Concomitant]
     Indication: CHEMOTHERAPY
     Dates: start: 20080414

REACTIONS (7)
  - COMA [None]
  - DRUG LEVEL INCREASED [None]
  - ENCEPHALITIS [None]
  - MYOCLONUS [None]
  - OVERDOSE [None]
  - PARTIAL SEIZURES [None]
  - SOMNOLENCE [None]
